FAERS Safety Report 10214022 (Version 1)
Quarter: 2014Q2

REPORT INFORMATION
  Report Type: Spontaneous
  Country: US (occurrence: None)
  Receive Date: 20140602
  Receipt Date: 20140602
  Transmission Date: 20141212
  Serious: Yes (Disabling)
  Sender: FDA-Public Use
  Company Number: None

PATIENT
  Sex: Female

DRUGS (17)
  1. CALCIUM-VITAMIN D [Concomitant]
  2. POLYETHYLENE GLUCOL POWDER [Concomitant]
  3. CYANOCOLABALMIN [Concomitant]
  4. NIFEDIPINE [Concomitant]
  5. POLYVINYL ALCOHOL-POVIDONE [Concomitant]
  6. SODIUM CHLORIDE [Concomitant]
  7. AVAPRO [Suspect]
     Indication: HYPERTENSION
     Dosage: BY MOUTH
     Dates: start: 2003, end: 2004
  8. MAPAP (ACETAMINOPHEN) [Concomitant]
  9. DOCUSATE SODIUM (COLACE) [Concomitant]
  10. RED YEAST RICE [Concomitant]
  11. MENTHOL (TOPICALANALGESIC) [Concomitant]
  12. VALSARTAN (DIOVAN) [Concomitant]
  13. METOPROLOL (TOPROL-XL) [Concomitant]
  14. ASPIRIN [Concomitant]
  15. GABAPENTIN [Concomitant]
  16. KELP PO [Concomitant]
  17. ACETIC ACID [Concomitant]

REACTIONS (2)
  - Visual impairment [None]
  - Ill-defined disorder [None]
